FAERS Safety Report 24708423 (Version 3)
Quarter: 2025Q1

REPORT INFORMATION
  Report Type: Spontaneous
  Country: US (occurrence: US)
  Receive Date: 20241207
  Receipt Date: 20250226
  Transmission Date: 20250408
  Serious: Yes (Other)
  Sender: AUROBINDO
  Company Number: US-MLMSERVICE-20241115-PI259730-00089-1

PATIENT
  Age: 76 Year
  Sex: Female

DRUGS (2)
  1. CEFPODOXIME [Suspect]
     Active Substance: CEFPODOXIME
     Indication: Urinary tract infection
     Route: 065
  2. CEFTRIAXONE [Suspect]
     Active Substance: CEFTRIAXONE
     Indication: Urinary tract infection
     Route: 065

REACTIONS (3)
  - Acute kidney injury [Recovering/Resolving]
  - Glomerulonephritis [Recovering/Resolving]
  - Tubulointerstitial nephritis [Recovering/Resolving]
